FAERS Safety Report 10695036 (Version 1)
Quarter: 2015Q1

REPORT INFORMATION
  Report Type: Spontaneous
  Country: US (occurrence: None)
  Receive Date: 20150105
  Receipt Date: 20150105
  Transmission Date: 20150721
  Serious: Yes (Other)
  Sender: FDA-Public Use
  Company Number: US-H14001-14-01877

PATIENT
  Sex: Female
  Weight: 54.43 kg

DRUGS (2)
  1. LITHIUM [Suspect]
     Active Substance: LITHIUM CARBONATE
     Indication: ANXIETY
  2. LITHIUM (LITHIUM) (UNKNOWN) (LITHIUM) [Suspect]
     Active Substance: LITHIUM CARBONATE
     Indication: ANXIETY

REACTIONS (16)
  - Hyperparathyroidism primary [None]
  - Coronary artery bypass [None]
  - Hyperthyroidism [None]
  - Night sweats [None]
  - Osteopenia [None]
  - Constipation [None]
  - Neoplasm [None]
  - Malabsorption [None]
  - Kidney infection [None]
  - Eructation [None]
  - Dehydration [None]
  - Weight increased [None]
  - Bone disorder [None]
  - Weight decreased [None]
  - Cystitis [None]
  - Paraesthesia [None]
